FAERS Safety Report 8928839 (Version 1)
Quarter: 2012Q4

REPORT INFORMATION
  Report Type: 
  Country: US (occurrence: US)
  Receive Date: 20121128
  Receipt Date: 20121128
  Transmission Date: 20130627
  Serious: No
  Sender: FDA-Public Use
  Company Number: US-PFIZER INC-2010169313

PATIENT
  Age: 61 Year
  Sex: Female
  Weight: 63.49 kg

DRUGS (2)
  1. TOVIAZ [Suspect]
     Indication: OVERACTIVE BLADDER
     Dosage: 8 mg,daily
     Dates: start: 201011, end: 201201
  2. VESICARE [Suspect]
     Indication: OVERACTIVE BLADDER
     Dosage: UNK

REACTIONS (7)
  - Disorientation [Recovered/Resolved]
  - Dizziness [Recovered/Resolved]
  - Dysphagia [Recovered/Resolved]
  - Pain in extremity [Recovered/Resolved]
  - Dry eye [Recovered/Resolved]
  - Dry mouth [Recovered/Resolved]
  - Drug ineffective [Unknown]
